FAERS Safety Report 10070102 (Version 2)
Quarter: 2014Q2

REPORT INFORMATION
  Report Type: Not Available
  Country: JP (occurrence: JP)
  Receive Date: 20140410
  Receipt Date: 20140410
  Transmission Date: 20141212
  Serious: Yes (Hospitalization)
  Sender: FDA-Public Use
  Company Number: JP-ASTELLAS-2013JP012702

PATIENT
  Age: 86 Year
  Sex: Male
  Weight: 44.6 kg

DRUGS (4)
  1. VESICARE [Suspect]
     Indication: HYPERTONIC BLADDER
     Dosage: 5 MG, UID/QD
     Route: 048
     Dates: start: 20120802, end: 20120918
  2. HARNAL D [Concomitant]
     Indication: HYPERTONIC BLADDER
     Dosage: 0.2 MG, UID/QD
     Route: 048
     Dates: start: 20110826, end: 20120825
  3. AVOLVE [Concomitant]
     Indication: HYPERTONIC BLADDER
     Dosage: 0.5 MG, UID/QD
     Route: 048
     Dates: start: 20111222, end: 20120925
  4. OZEX                               /01070602/ [Concomitant]
     Indication: HYPERTONIC BLADDER
     Dosage: 150 MG, BID
     Route: 048
     Dates: start: 20120815, end: 20120818

REACTIONS (1)
  - Generalised erythema [Recovered/Resolved]
